FAERS Safety Report 20451309 (Version 1)
Quarter: 2022Q1

REPORT INFORMATION
  Report Type: Spontaneous
  Country: US (occurrence: None)
  Receive Date: 20220209
  Receipt Date: 20220209
  Transmission Date: 20220423
  Serious: Yes (Death, Hospitalization)
  Sender: FDA-Public Use
  Company Number: None

PATIENT
  Age: 67 Year
  Sex: Female
  Weight: 40.28 kg

DRUGS (2)
  1. PROMETHAZINE [Suspect]
     Active Substance: PROMETHAZINE HYDROCHLORIDE
     Indication: Nausea
     Dosage: FREQUENCY : ONCE;?OTHER ROUTE : IVP;?
     Route: 050
     Dates: start: 20211231, end: 20211231
  2. PROMETHAZINE [Suspect]
     Active Substance: PROMETHAZINE HYDROCHLORIDE
     Indication: Vomiting

REACTIONS (7)
  - Haemodialysis [None]
  - Nausea [None]
  - Anxiety [None]
  - Swollen tongue [None]
  - Dyspnoea [None]
  - Blood pressure increased [None]
  - Cardiac arrest [None]

NARRATIVE: CASE EVENT DATE: 20211231
